FAERS Safety Report 11646215 (Version 6)
Quarter: 2017Q4

REPORT INFORMATION
  Report Type: Spontaneous
  Country: US (occurrence: US)
  Receive Date: 20151020
  Receipt Date: 20171231
  Transmission Date: 20180320
  Serious: Yes (Other)
  Sender: FDA-Public Use
  Company Number: US-ROCHE-1617350

PATIENT
  Age: 76 Year
  Sex: Male

DRUGS (15)
  1. PRILOSEC [Concomitant]
     Active Substance: OMEPRAZOLE MAGNESIUM
     Route: 065
  2. DIOVAN [Concomitant]
     Active Substance: VALSARTAN
     Route: 065
  3. MUCINEX [Concomitant]
     Active Substance: GUAIFENESIN
  4. OMEPRAZOLE. [Concomitant]
     Active Substance: OMEPRAZOLE
  5. GABAPENTIN. [Concomitant]
     Active Substance: GABAPENTIN
  6. AMLODIPINE BESYLATE/VALSARTAN [Concomitant]
     Active Substance: AMLODIPINE BESYLATE\VALSARTAN
  7. GUAIFENESIN. [Concomitant]
     Active Substance: GUAIFENESIN
  8. LYRICA [Concomitant]
     Active Substance: PREGABALIN
  9. ZANTAC [Concomitant]
     Active Substance: RANITIDINE HYDROCHLORIDE
  10. METOPROLOL. [Concomitant]
     Active Substance: METOPROLOL
  11. ESBRIET [Suspect]
     Active Substance: PIRFENIDONE
     Dosage: 3 CAPSULES 3 TIMES DAILY
     Route: 048
     Dates: start: 20150804
  12. ESBRIET [Suspect]
     Active Substance: PIRFENIDONE
     Dosage: 3 CAPSULES 3 TIMES DAILY
     Route: 048
     Dates: start: 20170405
  13. AMLODIPINE [Concomitant]
     Active Substance: AMLODIPINE BESYLATE
     Route: 065
  14. ESBRIET [Suspect]
     Active Substance: PIRFENIDONE
     Indication: IDIOPATHIC PULMONARY FIBROSIS
     Route: 048
     Dates: start: 20150803
  15. XARELTO [Concomitant]
     Active Substance: RIVAROXABAN
     Route: 065

REACTIONS (8)
  - Paranasal sinus hypersecretion [Unknown]
  - Diarrhoea [Unknown]
  - Thinking abnormal [Unknown]
  - Dizziness [Unknown]
  - Cardiac failure [Not Recovered/Not Resolved]
  - Dyspepsia [Not Recovered/Not Resolved]
  - Constipation [Unknown]
  - Pulmonary congestion [Unknown]
